FAERS Safety Report 14964567 (Version 1)
Quarter: 2018Q2

REPORT INFORMATION
  Report Type: Spontaneous
  Country: FR (occurrence: FR)
  Receive Date: 20180601
  Receipt Date: 20180601
  Transmission Date: 20180711
  Serious: Yes (Life-Threatening)
  Sender: FDA-Public Use
  Company Number: FR-TEVA-2018-FR-901038

PATIENT
  Age: 72 Year
  Sex: Female

DRUGS (2)
  1. LEVOFLOXACIN TABLETS, 250 MG, 500 MG AND 750 MG [Suspect]
     Active Substance: LEVOFLOXACIN
     Indication: OSTEONECROSIS
     Dosage: 1000 MILLIGRAM DAILY;
     Route: 048
     Dates: start: 20170220, end: 20170302
  2. RIFADINE [Suspect]
     Active Substance: RIFAMPIN
     Indication: OSTEONECROSIS
     Dosage: 900 MILLIGRAM DAILY;
     Route: 048
     Dates: start: 20170220, end: 20170302

REACTIONS (4)
  - Face oedema [Recovered/Resolved]
  - Oedema peripheral [Recovered/Resolved]
  - Rash maculo-papular [Recovered/Resolved]
  - Eosinophilia [Recovered/Resolved]

NARRATIVE: CASE EVENT DATE: 20170302
